FAERS Safety Report 8016919-9 (Version None)
Quarter: 2012Q1

REPORT INFORMATION
  Report Type: 
  Country: None (occurrence: None)
  Receive Date: 20120102
  Receipt Date: 20111221
  Transmission Date: 20120608
  Serious: Yes (Other)
  Sender: FDA-Public Use
  Company Number: PHEH2011US012279

PATIENT
  Age: 62 Year
  Sex: Female

DRUGS (7)
  1. CARVEDILOL [Suspect]
  2. NOVOLOG [Concomitant]
     Indication: DIABETES MELLITUS
     Dosage: UNK UKN, UNK
  3. TEKTURNA [Suspect]
     Dosage: 300 MG, QD
  4. LANTUS [Concomitant]
     Indication: DIABETES MELLITUS
     Dosage: UNK UKN, UNK
  5. CLONIDINE [Suspect]
  6. ALLOPURINOL [Concomitant]
     Indication: GOUTY ARTHRITIS
     Dosage: UNK UKN, UNK
  7. LEVOTHYROXINE SODIUM [Concomitant]
     Indication: THYROID DISORDER
     Dosage: UNK UKN, UNK

REACTIONS (4)
  - RENAL IMPAIRMENT [None]
  - BLOOD PRESSURE INCREASED [None]
  - RENAL DISORDER [None]
  - BLOOD GLUCOSE INCREASED [None]
